FAERS Safety Report 5097627-3 (Version None)
Quarter: 2006Q3

REPORT INFORMATION
  Report Type: 
  Country: None (occurrence: None)
  Receive Date: 20060901
  Receipt Date: 20060816
  Transmission Date: 20061208
  Serious: Yes (Death, Hospitalization)
  Sender: FDA-Public Use
  Company Number: SP00948

PATIENT
  Age: 44 Year
  Sex: Male
  Weight: 75.7507 kg

DRUGS (9)
  1. COLAZAL (BALSALAZIDE DISODIUM) CAPSULES, 750 MG (CAPSULES) [Suspect]
     Indication: COLITIS ULCERATIVE
     Dosage: 300MG/TID (4 PILLS/TID), ORAL
     Route: 048
     Dates: start: 20050801
  2. IMURAN [Suspect]
     Indication: COLITIS ULCERATIVE
     Dosage: 150MG (50MG/TID), ORAL
     Route: 048
     Dates: start: 20050801
  3. REMICADE (INFLIXIMAB) (INJECTION FOR INFUSION) [Suspect]
     Indication: COLITIS ULCERATIVE
     Dosage: SEE IMAGE
     Dates: start: 20060307, end: 20060307
  4. REMICADE (INFLIXIMAB) (INJECTION FOR INFUSION) [Suspect]
     Indication: COLITIS ULCERATIVE
     Dosage: SEE IMAGE
     Dates: start: 20060321, end: 20060321
  5. REMICADE (INFLIXIMAB) (INJECTION FOR INFUSION) [Suspect]
     Indication: COLITIS ULCERATIVE
     Dosage: SEE IMAGE
     Dates: start: 20060418, end: 20060418
  6. DOXYCYCLINE [Suspect]
     Indication: SCROTAL INFECTION
     Dosage: ORAL
     Route: 048
     Dates: start: 20060602
  7. EXTRA STRENGTH TYLENOL [Suspect]
     Indication: SCROTAL PAIN
     Dosage: AT LEAST 6 GRAMS, AVERAGING 12 PILLS PER DAY, ORAL)
     Route: 048
     Dates: start: 20060531
  8. ADVIL [Suspect]
     Indication: SCROTAL PAIN
     Dosage: ON OCCASION, ORAL
     Route: 048
     Dates: start: 20060531
  9. ALEVE [Suspect]
     Dosage: ON OCCASION, ORAL
     Route: 048
     Dates: start: 20060531

REACTIONS (24)
  - ABDOMINAL DISTENSION [None]
  - ABDOMINAL TENDERNESS [None]
  - ACTIVATED PARTIAL THROMBOPLASTIN TIME PROLONGED [None]
  - ASCITES [None]
  - AZOTAEMIA [None]
  - BLOOD ALBUMIN DECREASED [None]
  - DIALYSIS [None]
  - DRUG TOXICITY [None]
  - GROIN PAIN [None]
  - HAEMOGLOBIN DECREASED [None]
  - HEPATIC FAILURE [None]
  - HEPATITIS A [None]
  - HEPATITIS B [None]
  - HEPATOSPLENOMEGALY [None]
  - HEPATOTOXICITY [None]
  - MASS [None]
  - OEDEMA PERIPHERAL [None]
  - PLATELET COUNT DECREASED [None]
  - PROTHROMBIN TIME PROLONGED [None]
  - RENAL FAILURE [None]
  - RHABDOMYOLYSIS [None]
  - SCROTAL OEDEMA [None]
  - SCROTAL PAIN [None]
  - WHITE BLOOD CELL COUNT INCREASED [None]
